FAERS Safety Report 9638033 (Version 2)
Quarter: 2013Q4

REPORT INFORMATION
  Report Type: Report from Study
  Country: US (occurrence: US)
  Receive Date: 20131022
  Receipt Date: 20131022
  Transmission Date: 20140711
  Serious: Yes (Other)
  Sender: FDA-Public Use
  Company Number: PHHO2011US021619

PATIENT
  Age: 61 Year
  Sex: Female

DRUGS (2)
  1. SOM230 [Suspect]
     Indication: PANCREATIC CARCINOMA
     Dosage: 900 UG, BID
     Route: 058
     Dates: start: 20111219, end: 20111225
  2. BETA BLOCKING AGENTS [Concomitant]

REACTIONS (1)
  - Hyperglycaemia [Recovered/Resolved]
